FAERS Safety Report 21809454 (Version 2)
Quarter: 2024Q1

REPORT INFORMATION
  Report Type: Spontaneous
  Country: US (occurrence: US)
  Receive Date: 20230103
  Receipt Date: 20240119
  Transmission Date: 20240410
  Serious: No
  Sender: FDA-Public Use
  Company Number: US-SA-SAC20230102000440

PATIENT
  Age: 39 Year
  Sex: Female

DRUGS (2)
  1. CEREZYME [Suspect]
     Active Substance: IMIGLUCERASE
     Indication: Gaucher^s disease
     Dosage: 7200 IU, QOW
     Route: 042
     Dates: start: 202009
  2. EPINEPHRINE [Concomitant]
     Active Substance: EPINEPHRINE

REACTIONS (4)
  - Musculoskeletal stiffness [Unknown]
  - Neck pain [Unknown]
  - Central venous catheterisation [Unknown]
  - Maternal exposure during pregnancy [Unknown]

NARRATIVE: CASE EVENT DATE: 20221201
